FAERS Safety Report 19156823 (Version 1)
Quarter: 2021Q2

REPORT INFORMATION
  Report Type: Spontaneous
  Country: US (occurrence: US)
  Receive Date: 20210419
  Receipt Date: 20210419
  Transmission Date: 20210717
  Serious: No
  Sender: FDA-Public Use
  Company Number: None

PATIENT
  Age: 30 Year
  Sex: Female
  Weight: 104.85 kg

DRUGS (1)
  1. BOTOX [Suspect]
     Active Substance: ONABOTULINUMTOXINA

REACTIONS (5)
  - Injection site swelling [None]
  - Injection site pain [None]
  - Myalgia [None]
  - Tension headache [None]
  - Muscle tightness [None]

NARRATIVE: CASE EVENT DATE: 20210419
